FAERS Safety Report 11080522 (Version 1)
Quarter: 2015Q2

REPORT INFORMATION
  Report Type: Spontaneous
  Country: US (occurrence: US)
  Receive Date: 20150501
  Receipt Date: 20150501
  Transmission Date: 20150821
  Serious: No
  Sender: FDA-Public Use
  Company Number: US-ASTRAZENECA-2015SE40466

PATIENT
  Age: 79 Year
  Sex: Female
  Weight: 68.3 kg

DRUGS (2)
  1. VITAMIN PILLS [Concomitant]
  2. NEXIUM 24HR [Suspect]
     Active Substance: ESOMEPRAZOLE MAGNESIUM
     Indication: GASTROOESOPHAGEAL REFLUX DISEASE
     Route: 048
     Dates: start: 20150420

REACTIONS (5)
  - Tremor [Unknown]
  - Cardiac disorder [Unknown]
  - Palpitations [Unknown]
  - Hyperventilation [Unknown]
  - Hyperhidrosis [Unknown]
